FAERS Safety Report 11839090 (Version 3)
Quarter: 2016Q1

REPORT INFORMATION
  Report Type: Spontaneous
  Country: US (occurrence: US)
  Receive Date: 20151216
  Receipt Date: 20160301
  Transmission Date: 20160525
  Serious: Yes (Other)
  Sender: FDA-Public Use
  Company Number: US-009507513-1512USA004666

PATIENT
  Sex: Female
  Weight: 61.68 kg

DRUGS (1)
  1. KEYTRUDA [Suspect]
     Active Substance: PEMBROLIZUMAB
     Indication: MALIGNANT MELANOMA
     Dosage: DOSAGE FORM 100 MG, 2 MG/KG (FREQUENCY NOT REPORTED), TOTAL DAILY DOSE 100 MG
     Route: 042
     Dates: start: 20141007, end: 20151022

REACTIONS (6)
  - Malignant neoplasm progression [Unknown]
  - Vomiting [Unknown]
  - Drug effect decreased [Unknown]
  - Discomfort [Unknown]
  - Pain [Unknown]
  - Nausea [Unknown]
